FAERS Safety Report 19879005 (Version 1)
Quarter: 2021Q3

REPORT INFORMATION
  Report Type: Report from Study
  Country: None (occurrence: CA)
  Receive Date: 20210924
  Receipt Date: 20210924
  Transmission Date: 20211014
  Serious: Yes (Other)
  Sender: FDA-Public Use
  Company Number: CA-ABBVIE-21K-028-3823925-00

PATIENT
  Sex: Male

DRUGS (1)
  1. HUMIRA [Suspect]
     Active Substance: ADALIMUMAB
     Indication: COLITIS ULCERATIVE
     Route: 058
     Dates: start: 20201104

REACTIONS (12)
  - Weight bearing difficulty [Unknown]
  - Hypoaesthesia [Unknown]
  - Muscular weakness [Unknown]
  - Blood pressure increased [Unknown]
  - Intervertebral disc protrusion [Recovering/Resolving]
  - Colitis ulcerative [Recovered/Resolved]
  - Dysuria [Unknown]
  - Intervertebral disc protrusion [Unknown]
  - Mobility decreased [Unknown]
  - Procedural pain [Unknown]
  - Constipation [Unknown]
  - Frequent bowel movements [Recovering/Resolving]

NARRATIVE: CASE EVENT DATE: 2021
